FAERS Safety Report 9727190 (Version 1)
Quarter: 2013Q4

REPORT INFORMATION
  Report Type: Spontaneous
  Country: US (occurrence: US)
  Receive Date: 20131203
  Receipt Date: 20131203
  Transmission Date: 20140711
  Serious: No
  Sender: FDA-Public Use
  Company Number: US-BRISTOL-MYERS SQUIBB COMPANY-19588672

PATIENT
  Age: 64 Year
  Sex: Female
  Weight: 92.97 kg

DRUGS (2)
  1. BYETTA PEN DISPOSABLE [Suspect]
     Route: 058
  2. KOMBIGLYZE XR [Suspect]

REACTIONS (2)
  - Blood glucose increased [Not Recovered/Not Resolved]
  - Appetite disorder [Unknown]
